FAERS Safety Report 21819512 (Version 1)
Quarter: 2023Q1

REPORT INFORMATION
  Report Type: Spontaneous
  Country: US (occurrence: US)
  Receive Date: 20230104
  Receipt Date: 20230104
  Transmission Date: 20230417
  Serious: No
  Sender: FDA-Public Use
  Company Number: US-SA-SAC20230103000459

PATIENT
  Sex: Male

DRUGS (4)
  1. DUPIXENT [Suspect]
     Active Substance: DUPILUMAB
     Indication: Dermatitis atopic
     Dosage: 300 MG, QOW
     Route: 058
     Dates: start: 202108
  2. NAPROXEN [Concomitant]
     Active Substance: NAPROXEN
  3. EZETIMIBE [Concomitant]
     Active Substance: EZETIMIBE
  4. RINVOQ [Concomitant]
     Active Substance: UPADACITINIB

REACTIONS (1)
  - Drug ineffective [Unknown]
